FAERS Safety Report 25351612 (Version 2)
Quarter: 2025Q3

REPORT INFORMATION
  Report Type: Spontaneous
  Country: JP (occurrence: JP)
  Receive Date: 20250523
  Receipt Date: 20250701
  Transmission Date: 20251021
  Serious: Yes (Death)
  Sender: DAIICHI
  Company Number: JP-DSJP-DS-2025-141944-JP

PATIENT
  Age: 69 Year
  Sex: Male

DRUGS (1)
  1. ENHERTU [Suspect]
     Active Substance: FAM-TRASTUZUMAB DERUXTECAN-NXKI
     Indication: HER2 positive gastric cancer
     Dosage: 6.4 MG/KG, ONCE EVERY 3 WK
     Route: 041

REACTIONS (3)
  - Disease progression [Fatal]
  - Pneumocystis jirovecii pneumonia [Recovering/Resolving]
  - Eastern Cooperative Oncology Group performance status worsened [Unknown]
